FAERS Safety Report 7993569-1 (Version None)
Quarter: 2011Q4

REPORT INFORMATION
  Report Type: 
  Country: None (occurrence: None)
  Receive Date: 20111219
  Receipt Date: 20111209
  Transmission Date: 20120403
  Serious: Yes (Other)
  Sender: FDA-Public Use
  Company Number: CN-ASTRAZENECA-2011SE74516

PATIENT

DRUGS (9)
  1. ROPIVACAINE HYDROCHLORIDE [Suspect]
     Indication: ANAESTHESIA
     Dosage: 10-15 ML
     Route: 008
  2. PROPOFOL [Suspect]
     Dosage: MAINTAINED WITH 4-6 MG/KG.H
     Route: 042
  3. ISOFLURANE [Suspect]
     Indication: ANAESTHESIA
     Dosage: 1-3 PERCENT
     Route: 055
  4. VECURONIUM BROMIDE [Suspect]
     Indication: ANAESTHESIA
     Route: 042
  5. PROPOFOL [Suspect]
     Indication: ANAESTHESIA
     Dosage: 1-2 MG/KG
     Route: 042
  6. MIDAZOLAM [Suspect]
     Indication: ANAESTHESIA
     Route: 042
  7. FENTANYL [Suspect]
     Indication: ANAESTHESIA
     Route: 042
  8. SCOPOLAMINE [Suspect]
     Indication: ANAESTHESIA
     Dosage: 0.06-0.075 MG/KG
     Route: 042
  9. LIDOCAINE [Suspect]
     Indication: ANAESTHESIA
     Route: 042

REACTIONS (3)
  - HYPOTENSION [None]
  - HEART RATE INCREASED [None]
  - HYPERHIDROSIS [None]
